FAERS Safety Report 6029884-0 (Version None)
Quarter: 2008Q4

REPORT INFORMATION
  Report Type: 
  Country: None (occurrence: None)
  Receive Date: 20081222
  Receipt Date: 20080926
  Transmission Date: 20090506
  Serious: No
  Sender: FDA-Public Use
  Company Number: US-WYE-H06170908

PATIENT
  Age: 43 Year
  Sex: Male
  Weight: 78.54 kg

DRUGS (5)
  1. PRISTIQ [Suspect]
     Indication: DEPRESSION
     Dosage: 50 MG 1X PER 1 DAY, ORAL
     Route: 048
     Dates: start: 20080922
  2. VALIUM [Concomitant]
  3. LORCET-HD [Concomitant]
  4. PROZAC [Concomitant]
  5. ACODART (DUTASTERIDE) [Concomitant]

REACTIONS (1)
  - SUDDEN ONSET OF SLEEP [None]
